FAERS Safety Report 9630141 (Version 1)
Quarter: 2013Q4

REPORT INFORMATION
  Report Type: Report from Study
  Country: DE (occurrence: DE)
  Receive Date: 20131017
  Receipt Date: 20131017
  Transmission Date: 20140711
  Serious: No
  Sender: FDA-Public Use
  Company Number: PHHY2013DE116213

PATIENT
  Sex: Male

DRUGS (14)
  1. AMN107 [Suspect]
     Indication: CHRONIC MYELOID LEUKAEMIA
     Dosage: 600 MG, PER DAY
     Route: 048
     Dates: start: 20111202, end: 20120320
  2. AMN107 [Suspect]
     Dosage: 450 MG, PER DAY
     Route: 048
     Dates: start: 20111228, end: 20120320
  3. AMN107 [Suspect]
     Dosage: 300 MG, PER DAY
     Route: 048
     Dates: start: 20130204
  4. AMN107 [Suspect]
     Dosage: 600 MG, PER DAY
     Route: 048
     Dates: start: 20130703, end: 20131010
  5. AMN107 [Suspect]
     Dosage: 450 MG, PER DAY
     Route: 048
     Dates: start: 20131011
  6. ASS [Concomitant]
     Dosage: 100 MG
  7. OMEPRAZOLE [Concomitant]
     Dosage: 20 MG
  8. PRAVASTATIN [Concomitant]
     Dosage: 20 MG
  9. METOPROLOL [Concomitant]
  10. ACTRAPHANE [Concomitant]
  11. FUROSEMIDE [Concomitant]
     Dosage: 80 MG
  12. LITALIR [Concomitant]
     Dosage: 500 MG
     Dates: start: 201111, end: 201111
  13. AMLODIPINE [Concomitant]
     Dosage: 5 MG
  14. ALLOPURINOL [Concomitant]
     Dosage: 300 MG
     Dates: start: 20120223

REACTIONS (1)
  - Gamma-glutamyltransferase increased [Not Recovered/Not Resolved]
